FAERS Safety Report 15669933 (Version 1)
Quarter: 2018Q4

REPORT INFORMATION
  Report Type: Spontaneous
  Country: IT (occurrence: IT)
  Receive Date: 20181129
  Receipt Date: 20181129
  Transmission Date: 20190205
  Serious: Yes (Other)
  Sender: FDA-Public Use
  Company Number: IT-ASTRAZENECA-2018SF54343

PATIENT
  Age: 25656 Day
  Sex: Female

DRUGS (1)
  1. FASLODEX [Suspect]
     Active Substance: FULVESTRANT
     Indication: BREAST CANCER FEMALE
     Route: 030
     Dates: start: 2005

REACTIONS (3)
  - Throat irritation [Unknown]
  - Metastases to bone [Unknown]
  - Cough [Unknown]

NARRATIVE: CASE EVENT DATE: 20181110
